FAERS Safety Report 14534919 (Version 3)
Quarter: 2018Q2

REPORT INFORMATION
  Report Type: Report from Study
  Country: US (occurrence: US)
  Receive Date: 20180215
  Receipt Date: 20180515
  Transmission Date: 20180711
  Serious: Yes (Other)
  Sender: FDA-Public Use
  Company Number: US-BAYER-2018-024268

PATIENT
  Age: 63 Year
  Sex: Male
  Weight: 67.57 kg

DRUGS (3)
  1. NEXAVAR [Suspect]
     Active Substance: SORAFENIB
     Indication: HEPATOCELLULAR CARCINOMA
     Dosage: 200 MG, BID
     Route: 048
     Dates: start: 20180109
  2. NEXAVAR [Suspect]
     Active Substance: SORAFENIB
     Indication: HEPATOCELLULAR CARCINOMA
     Dosage: 200 MG, BID
     Route: 048
     Dates: start: 20180125, end: 2018
  3. STIVARGA [Concomitant]
     Active Substance: REGORAFENIB
     Dosage: UNK

REACTIONS (16)
  - Apathy [Unknown]
  - Decreased appetite [Unknown]
  - Insomnia [Unknown]
  - Loss of consciousness [Unknown]
  - Rib fracture [Unknown]
  - Dyspnoea [Unknown]
  - Diarrhoea [Unknown]
  - Abdominal pain [Not Recovered/Not Resolved]
  - Facial operation [Unknown]
  - Depression [Unknown]
  - Weight decreased [Unknown]
  - Accident [Unknown]
  - Anxiety [Unknown]
  - Decreased appetite [Not Recovered/Not Resolved]
  - Insomnia [Unknown]
  - Abdominal pain [Unknown]

NARRATIVE: CASE EVENT DATE: 2018
